FAERS Safety Report 26034682 (Version 1)
Quarter: 2025Q4

REPORT INFORMATION
  Report Type: Spontaneous
  Country: EU (occurrence: EU)
  Receive Date: 20251112
  Receipt Date: 20251112
  Transmission Date: 20260117
  Serious: No
  Sender: ANI
  Company Number: EU-ANIPHARMA-031095

PATIENT
  Age: 84 Year
  Sex: Male

DRUGS (11)
  1. BICALUTAMIDE [Suspect]
     Active Substance: BICALUTAMIDE
     Indication: Product used for unknown indication
     Route: 048
     Dates: start: 20250301, end: 20251001
  2. SINTROM [Concomitant]
     Active Substance: ACENOCOUMAROL
     Indication: Atrial fibrillation
     Dates: start: 20170201
  3. ZYCLARA [Concomitant]
     Active Substance: IMIQUIMOD
     Indication: Hyperkeratosis
     Dates: start: 20070328
  4. ALLOPURINOL [Concomitant]
     Active Substance: ALLOPURINOL
     Indication: Blood uric acid increased
     Dates: start: 20070328
  5. PAROXETINE [Concomitant]
     Active Substance: PAROXETINE
     Indication: Depression
     Dates: start: 20170419
  6. ACETAMINOPHEN [Concomitant]
     Active Substance: ACETAMINOPHEN
     Indication: Nasopharyngitis
     Dates: start: 20241105
  7. ANTIVERRUGAS [Concomitant]
     Indication: Skin papilloma
     Dates: start: 20250206
  8. HYDROCHLOROTHIAZIDE [Concomitant]
     Active Substance: HYDROCHLOROTHIAZIDE
     Indication: Essential hypertension
     Dates: start: 20250326
  9. OMEPRAZOLE [Concomitant]
     Active Substance: OMEPRAZOLE
     Indication: Dyspepsia
     Dates: start: 20250417
  10. NASONEX [Concomitant]
     Active Substance: MOMETASONE FUROATE
     Indication: Otorrhoea
     Dates: start: 20240621
  11. CANDESARTAN CILEXETIL\HYDROCHLOROTHIAZIDE [Concomitant]
     Active Substance: CANDESARTAN CILEXETIL\HYDROCHLOROTHIAZIDE
     Indication: Essential hypertension
     Dates: start: 20150604

REACTIONS (1)
  - Gynaecomastia [Unknown]

NARRATIVE: CASE EVENT DATE: 20250701
